FAERS Safety Report 9217892 (Version 10)
Quarter: 2014Q3

REPORT INFORMATION
  Report Type: Report from Study
  Country: JP (occurrence: JP)
  Receive Date: 20130408
  Receipt Date: 20140808
  Transmission Date: 20150326
  Serious: Yes (Hospitalization)
  Sender: FDA-Public Use
  Company Number: JP-AMGEN-JPNCT2013024388

PATIENT
  Age: 62 Year
  Sex: Female
  Weight: 46 kg

DRUGS (38)
  1. DEXART [Concomitant]
     Active Substance: DEXAMETHASONE SODIUM PHOSPHATE
     Indication: IMMUNE THROMBOCYTOPENIC PURPURA
     Dosage: 6.6 MG, UNK
     Route: 065
     Dates: start: 20120814, end: 20130718
  2. TS-1 [Concomitant]
     Active Substance: GIMERACIL\OTERACIL POTASSIUM\TEGAFUR
     Indication: COLON CANCER
     Dosage: UNK
     Route: 048
  3. SELBEX [Concomitant]
     Active Substance: TEPRENONE
     Indication: PROPHYLAXIS
     Dosage: 50 MG, TID
     Route: 048
  4. DAIKENCHUTO [Concomitant]
     Active Substance: HERBALS
     Indication: CONSTIPATION
     Dosage: 3 DF, UNK
     Route: 048
  5. SANGLOPOR [Concomitant]
     Active Substance: HUMAN IMMUNOGLOBULIN G
     Indication: IMMUNE THROMBOCYTOPENIC PURPURA
     Dosage: 17.5 G, UNK
     Route: 041
     Dates: start: 20130214, end: 20130218
  6. ROMIPLOSTIM - KHK [Suspect]
     Active Substance: ROMIPLOSTIM
     Indication: IMMUNE THROMBOCYTOPENIC PURPURA
     Dosage: 5 MUG/KG, UNK
     Route: 058
     Dates: start: 20120628, end: 20130801
  7. ALOXI [Concomitant]
     Active Substance: PALONOSETRON HYDROCHLORIDE
     Indication: COLON CANCER
     Dosage: UNK
     Route: 042
  8. PREDONINE [Concomitant]
     Active Substance: PREDNISOLONE\PREDNISOLONE ACETATE\PREDNISOLONE SODIUM SUCCINATE
     Indication: IMMUNE THROMBOCYTOPENIC PURPURA
     Dosage: 15 MG, UNK
     Route: 048
     Dates: start: 20120614, end: 20130902
  9. TAKEPRON [Concomitant]
     Active Substance: LANSOPRAZOLE
     Indication: PROPHYLAXIS
     Dosage: 15 MG, QD
     Route: 048
  10. SEIBULE [Concomitant]
     Active Substance: MIGLITOL
     Indication: DIABETES MELLITUS
     Dosage: 150 MG, UNK
     Route: 048
  11. URSO [Concomitant]
     Active Substance: URSODIOL
     Indication: COLON CANCER
     Dosage: 600 MG, UNK
     Route: 048
  12. EMEND [Concomitant]
     Active Substance: APREPITANT
     Indication: COLON CANCER
     Dosage: UNK
     Route: 048
  13. ADONA [Concomitant]
     Active Substance: CARBAZOCHROME SODIUM SULFONATE
     Indication: PROPHYLAXIS
     Dosage: 90 MG, UNK
     Route: 048
  14. ALESION [Concomitant]
     Active Substance: EPINASTINE HYDROCHLORIDE
     Indication: RHINITIS ALLERGIC
     Dosage: UNK
     Route: 048
  15. PURSENNID [Concomitant]
     Active Substance: SENNOSIDES A AND B CALCIUM
     Indication: CONSTIPATION
     Dosage: 24 MG, UNK
     Route: 048
  16. CRAVIT [Concomitant]
     Active Substance: LEVOFLOXACIN
     Indication: CYSTITIS
     Dosage: UNK
     Route: 065
  17. ELPLAT [Concomitant]
     Active Substance: OXALIPLATIN
     Indication: COLON CANCER
     Dosage: UNK
     Route: 041
  18. XELODA [Concomitant]
     Active Substance: CAPECITABINE
     Indication: COLON CANCER
     Dosage: 3000 MG, UNK
     Route: 048
  19. URSO [Concomitant]
     Active Substance: URSODIOL
     Indication: METASTASES TO LIVER
  20. AMARYL [Concomitant]
     Active Substance: GLIMEPIRIDE
     Dosage: 1 MG, UNK
     Route: 048
  21. ASCORBIC ACID. [Concomitant]
     Active Substance: ASCORBIC ACID
     Indication: IMMUNE THROMBOCYTOPENIC PURPURA
     Dosage: 4000 MG, UNK
     Route: 048
     Dates: start: 20120614, end: 20120820
  22. BONZOL [Concomitant]
     Active Substance: LANSOPRAZOLE
     Indication: IMMUNE THROMBOCYTOPENIC PURPURA
     Dosage: 200 MG, UNK
     Route: 048
     Dates: start: 20120614, end: 20120820
  23. MAGLAX [Concomitant]
     Active Substance: MAGNESIUM OXIDE
     Indication: CONSTIPATION
     Dosage: 1980 MG, UNK
     Route: 048
  24. RAMOSETRON HYDROCHLORIDE [Concomitant]
     Active Substance: RAMOSETRON HYDROCHLORIDE
     Indication: COLON CANCER
     Dosage: UNK
     Route: 065
  25. FOLIAMIN [Concomitant]
     Active Substance: FOLIC ACID
     Indication: COLON CANCER
     Dosage: UNK
     Route: 065
  26. LAXOBERON [Concomitant]
     Active Substance: SODIUM PICOSULFATE
     Indication: CONSTIPATION
     Dosage: UNK
     Route: 048
  27. HIRUDOID [Concomitant]
     Active Substance: GLYCOSAMINOGLYCANS
     Indication: PALMAR-PLANTAR ERYTHRODYSAESTHESIA SYNDROME
     Dosage: UNK
     Route: 061
  28. DIBETOS [Concomitant]
     Active Substance: BUFORMIN
     Indication: DIABETES MELLITUS
     Dosage: 100 MG, UNK
     Route: 048
  29. GLYCYRON [Concomitant]
     Active Substance: AMMONIUM GLYCYRRHIZATE\GLYCINE\METHIONINE
     Indication: COLON CANCER
     Dosage: UNK
     Route: 065
  30. WARFARIN [Concomitant]
     Active Substance: WARFARIN
     Indication: PROPHYLAXIS
     Dosage: 4 MG, UNK
     Route: 048
  31. PRIMPERAN [Concomitant]
     Active Substance: METOCLOPRAMIDE HYDROCHLORIDE
     Indication: NAUSEA
     Dosage: 15 MG, UNK
     Route: 065
  32. POLARAMINE [Concomitant]
     Active Substance: DEXCHLORPHENIRAMINE MALEATE
     Indication: COLON CANCER
     Dosage: UNK
     Route: 065
  33. CAMPTO [Concomitant]
     Active Substance: IRINOTECAN
     Indication: COLON CANCER
     Dosage: UNK
     Route: 041
  34. IMURAN [Concomitant]
     Active Substance: AZATHIOPRINE
     Indication: IMMUNE THROMBOCYTOPENIC PURPURA
     Dosage: 50 MG, UNK
     Route: 048
     Dates: start: 20120614, end: 20120809
  35. GASTER [Concomitant]
     Active Substance: FAMOTIDINE
     Indication: PROPHYLAXIS
     Dosage: UNK
     Route: 048
  36. BAYASPIRIN [Concomitant]
     Active Substance: ASPIRIN
     Indication: PROPHYLAXIS
     Dosage: UNK
     Route: 048
  37. POSTERISAN                         /00593101/ [Concomitant]
     Indication: HAEMORRHOIDS
     Dosage: UNK
     Route: 054
  38. SLOW-K [Concomitant]
     Active Substance: POTASSIUM CHLORIDE
     Indication: PROPHYLAXIS
     Dosage: UNK
     Route: 048

REACTIONS (24)
  - Deep vein thrombosis [Recovering/Resolving]
  - Pyrexia [Recovering/Resolving]
  - Infection [Recovering/Resolving]
  - Insomnia [Recovering/Resolving]
  - Deep vein thrombosis [Recovering/Resolving]
  - Constipation [Recovering/Resolving]
  - Oedema peripheral [Recovering/Resolving]
  - Haematuria [Recovering/Resolving]
  - Back pain [Recovering/Resolving]
  - Epistaxis [Recovered/Resolved]
  - Haemoglobin decreased [Recovering/Resolving]
  - Colon cancer [Not Recovered/Not Resolved]
  - Thrombocytopenia [Not Recovered/Not Resolved]
  - Melaena [Recovering/Resolving]
  - Diarrhoea [Recovering/Resolving]
  - Ileus paralytic [Recovered/Resolved]
  - Vascular pain [Recovering/Resolving]
  - Infection [Recovering/Resolving]
  - Anaemia [Not Recovered/Not Resolved]
  - Deep vein thrombosis [Recovering/Resolving]
  - Renal impairment [Recovered/Resolved]
  - Hypoaesthesia [Not Recovered/Not Resolved]
  - Cystitis [Recovering/Resolving]
  - Haemorrhoids [Recovering/Resolving]

NARRATIVE: CASE EVENT DATE: 20120814
